FAERS Safety Report 6807403-6 (Version None)
Quarter: 2010Q2

REPORT INFORMATION
  Report Type: 
  Country: None (occurrence: None)
  Receive Date: 20100629
  Receipt Date: 20081107
  Transmission Date: 20101027
  Serious: No
  Sender: FDA-Public Use
  Company Number: US-PFIZER INC-2008074885

PATIENT
  Sex: Male

DRUGS (14)
  1. NITROSTAT [Suspect]
     Dates: start: 20070901
  2. ALL OTHER THERAPEUTIC PRODUCTS [Concomitant]
  3. LOVASTATIN [Concomitant]
  4. COLCHICINE [Concomitant]
  5. LEVOTHYROXINE SODIUM [Concomitant]
  6. ALL OTHER THERAPEUTIC PRODUCTS [Concomitant]
  7. NEXIUM [Concomitant]
  8. SPIRONOLACTONE [Concomitant]
  9. ALLOPURINOL [Concomitant]
  10. PLAVIX [Concomitant]
  11. CARBATROL [Concomitant]
  12. CLONIDINE [Concomitant]
  13. ISOSORBIDE [Concomitant]
  14. PROSCAR [Concomitant]

REACTIONS (1)
  - DRUG INEFFECTIVE [None]
